FAERS Safety Report 26131912 (Version 1)
Quarter: 2025Q4

REPORT INFORMATION
  Report Type: Spontaneous
  Country: CN (occurrence: CN)
  Receive Date: 20251208
  Receipt Date: 20251208
  Transmission Date: 20260117
  Serious: Yes (Hospitalization, Other)
  Sender: PFIZER
  Company Number: CN-PFIZER INC-PV202500141987

PATIENT
  Age: 69 Year
  Sex: Male

DRUGS (5)
  1. CYTARABINE [Suspect]
     Active Substance: CYTARABINE
     Indication: Leukaemia
     Dosage: 0.015 G, 2X/DAY
     Route: 041
     Dates: start: 20251102, end: 20251111
  2. CYTARABINE [Suspect]
     Active Substance: CYTARABINE
     Indication: Leukaemia
     Dosage: 0.05 G, 1X/DAY
     Route: 037
     Dates: start: 20251107, end: 20251107
  3. METHOTREXATE SODIUM [Suspect]
     Active Substance: METHOTREXATE SODIUM
     Indication: Leukaemia
     Dosage: 10 MG, 1X/DAY
     Route: 037
     Dates: start: 20251107, end: 20251107
  4. DEXAMETHASONE SODIUM PHOSPHATE [Suspect]
     Active Substance: DEXAMETHASONE SODIUM PHOSPHATE
     Indication: Leukaemia
     Dosage: 5 MG, 1X/DAY
     Route: 037
     Dates: start: 20251107, end: 20251107
  5. OMACETAXINE MEPESUCCINATE [Suspect]
     Active Substance: OMACETAXINE MEPESUCCINATE
     Indication: Leukaemia
     Dosage: 2 MG, 1X/DAY
     Route: 041
     Dates: start: 20251102, end: 20251111

REACTIONS (9)
  - Granulocyte count decreased [Recovering/Resolving]
  - Platelet count decreased [Recovering/Resolving]
  - White blood cell count decreased [Recovered/Resolved]
  - Haemoglobin decreased [Recovering/Resolving]
  - C-reactive protein increased [Recovering/Resolving]
  - Blood creatinine increased [Unknown]
  - Pyrexia [Unknown]
  - Catheter site erythema [Unknown]
  - Purulence [Unknown]

NARRATIVE: CASE EVENT DATE: 20251113
